FAERS Safety Report 9995236 (Version 1)
Quarter: 2014Q1

REPORT INFORMATION
  Report Type: Spontaneous
  Country: US (occurrence: US)
  Receive Date: 20140311
  Receipt Date: 20140311
  Transmission Date: 20141002
  Serious: Yes (Hospitalization)
  Sender: FDA-Public Use
  Company Number: US-ELI_LILLY_AND_COMPANY-US201402008691

PATIENT
  Sex: 0

DRUGS (5)
  1. HUMALOG LISPRO [Suspect]
     Indication: TYPE 2 DIABETES MELLITUS
     Dosage: 26 U, EACH MORNING
     Route: 064
  2. HUMALOG LISPRO [Suspect]
     Dosage: 24 U, QD
     Route: 064
  3. HUMALOG LISPRO [Suspect]
     Dosage: 38 U, EACH EVENING
     Route: 064
  4. HUMULIN NPH [Suspect]
     Indication: TYPE 2 DIABETES MELLITUS
     Dosage: 36 U, EACH MORNING
     Route: 064
  5. HUMULIN NPH [Suspect]
     Dosage: 60 U, EACH EVENING
     Route: 064

REACTIONS (3)
  - Dyspnoea [Unknown]
  - Premature baby [Unknown]
  - Foetal exposure during pregnancy [Recovered/Resolved]
